FAERS Safety Report 16332334 (Version 1)
Quarter: 2019Q2

REPORT INFORMATION
  Report Type: Spontaneous
  Country: US (occurrence: US)
  Receive Date: 20190520
  Receipt Date: 20190520
  Transmission Date: 20190711
  Serious: No
  Sender: FDA-Public Use
  Company Number: US-TEVA-2019-US-1050165

PATIENT
  Age: 76 Year
  Sex: Female

DRUGS (1)
  1. DESVENLAFAXINE SODIUM [Suspect]
     Active Substance: DESVENLAFAXINE
     Route: 065

REACTIONS (3)
  - Amnesia [Unknown]
  - Malaise [Unknown]
  - Mania [Unknown]
